FAERS Safety Report 8421242-4 (Version None)
Quarter: 2012Q2

REPORT INFORMATION
  Report Type: 
  Country: None (occurrence: None)
  Receive Date: 20120608
  Receipt Date: 20120529
  Transmission Date: 20120825
  Serious: Yes (Other)
  Sender: FDA-Public Use
  Company Number: BR-JNJFOC-20120600332

PATIENT
  Age: 14 Year
  Sex: Male
  Weight: 90 kg

DRUGS (4)
  1. FLUOXETINE [Suspect]
     Indication: TOURETTE'S DISORDER
     Route: 065
  2. HALDOL [Suspect]
     Indication: TOURETTE'S DISORDER
     Route: 065
     Dates: start: 20120201
  3. LISDEXAMFETAMINE DIMESYLATE [Suspect]
     Indication: TOURETTE'S DISORDER
     Route: 065
     Dates: start: 20110801, end: 20120201
  4. LUVOX [Suspect]
     Indication: TOURETTE'S DISORDER
     Route: 065
     Dates: end: 20120201

REACTIONS (6)
  - EXTRAPYRAMIDAL DISORDER [None]
  - BLOOD CHOLESTEROL INCREASED [None]
  - SOMNOLENCE [None]
  - HYPERTENSION [None]
  - BLOOD TRIGLYCERIDES INCREASED [None]
  - DISTURBANCE IN ATTENTION [None]
